FAERS Safety Report 16933642 (Version 1)
Quarter: 2019Q4

REPORT INFORMATION
  Report Type: Spontaneous
  Country: US (occurrence: US)
  Receive Date: 20191018
  Receipt Date: 20191018
  Transmission Date: 20200122
  Serious: Yes (Death, Other)
  Sender: FDA-Public Use
  Company Number: US-APOTEX-2019AP023742

PATIENT
  Age: 76 Year
  Sex: Female

DRUGS (2)
  1. ENOXAPARIN [Suspect]
     Active Substance: ENOXAPARIN
     Indication: EVIDENCE BASED TREATMENT
  2. ENOXAPARIN [Suspect]
     Active Substance: ENOXAPARIN
     Indication: PULMONARY EMBOLISM
     Dosage: 1 MG/KG, Q.12H (5 DOSES)
     Route: 058

REACTIONS (2)
  - Abdominal wall haematoma [Fatal]
  - Shock haemorrhagic [Fatal]
